FAERS Safety Report 5751221-7 (Version None)
Quarter: 2008Q2

REPORT INFORMATION
  Report Type: 
  Country: None (occurrence: None)
  Receive Date: 20080528
  Receipt Date: 20080430
  Transmission Date: 20081010
  Serious: No
  Sender: FDA-Public Use
  Company Number: US-BOEHRINGER INGELHEIM GMBH, GERMANY-2008-BP-06777BP

PATIENT
  Sex: Female

DRUGS (4)
  1. CATAPRES-TTS-1 [Suspect]
     Indication: HYPERTENSION
     Route: 061
     Dates: start: 20080422
  2. MIRALAX [Concomitant]
  3. RALOXIFENE HCL [Concomitant]
  4. LIPITOR [Concomitant]

REACTIONS (3)
  - BLOOD PRESSURE INCREASED [None]
  - BLOOD PRESSURE SYSTOLIC INCREASED [None]
  - HEART RATE INCREASED [None]
